FAERS Safety Report 16129235 (Version 1)
Quarter: 2019Q1

REPORT INFORMATION
  Report Type: Spontaneous
  Country: CA (occurrence: CA)
  Receive Date: 20190328
  Receipt Date: 20190328
  Transmission Date: 20190418
  Serious: Yes (Other)
  Sender: FDA-Public Use
  Company Number: CA-JNJFOC-20190329010

PATIENT
  Sex: Female

DRUGS (2)
  1. INVEGA SUSTENNA [Suspect]
     Active Substance: PALIPERIDONE PALMITATE
     Indication: PRODUCT USED FOR UNKNOWN INDICATION
     Route: 030
  2. ABILIFY [Concomitant]
     Active Substance: ARIPIPRAZOLE
     Route: 048

REACTIONS (16)
  - Feeling abnormal [Unknown]
  - Dementia [Unknown]
  - Amenorrhoea [Unknown]
  - Somnolence [Unknown]
  - Deafness [Unknown]
  - Injection site bruising [Unknown]
  - Amnesia [Unknown]
  - Injection site reaction [Unknown]
  - Dementia Alzheimer^s type [Unknown]
  - Sleep disorder [Unknown]
  - Mumps [Unknown]
  - Skin discolouration [Unknown]
  - Skin lesion [Unknown]
  - Contusion [Unknown]
  - Blood prolactin abnormal [Unknown]
  - Rash [Unknown]
